FAERS Safety Report 11427482 (Version 1)
Quarter: 2015Q3

REPORT INFORMATION
  Report Type: Spontaneous
  Country: US (occurrence: None)
  Receive Date: 20150827
  Receipt Date: 20150827
  Transmission Date: 20151125
  Serious: Yes (Hospitalization)
  Sender: FDA-Public Use
  Company Number: None

PATIENT
  Age: 77 Year
  Sex: Female
  Weight: 69 kg

DRUGS (3)
  1. BENDAMUSTINE HYDROCHLORIDE [Suspect]
     Active Substance: BENDAMUSTINE HYDROCHLORIDE
     Dates: end: 20150811
  2. RITUXIMAB (MOAB C2B8 ANTI CD20, CHIMERIC) [Suspect]
     Active Substance: RITUXIMAB
     Dates: end: 20150811
  3. VELCADE [Suspect]
     Active Substance: BORTEZOMIB
     Dates: end: 20150818

REACTIONS (7)
  - Fatigue [None]
  - Weight decreased [None]
  - Decreased appetite [None]
  - Dehydration [None]
  - Hypokalaemia [None]
  - Hypomagnesaemia [None]
  - Constipation [None]

NARRATIVE: CASE EVENT DATE: 20150823
